FAERS Safety Report 15119189 (Version 2)
Quarter: 2018Q3

REPORT INFORMATION
  Report Type: Spontaneous
  Country: DE (occurrence: DE)
  Receive Date: 20180709
  Receipt Date: 20180921
  Transmission Date: 20181010
  Serious: Yes (Life-Threatening, Other)
  Sender: FDA-Public Use
  Company Number: DE-009507513-1807DEU000827

PATIENT
  Age: 83 Year
  Sex: Male
  Weight: 75 kg

DRUGS (15)
  1. KEYTRUDA [Suspect]
     Active Substance: PEMBROLIZUMAB
     Indication: MALIGNANT MELANOMA
     Dosage: UNK
     Route: 042
     Dates: start: 201804, end: 20180514
  2. NEXIUM [Concomitant]
     Active Substance: ESOMEPRAZOLE MAGNESIUM
     Dosage: DAILY DOSE: 20 MG MILLGRAM(S) EVERY WEEKS
  3. BELOC?ZOK [Concomitant]
     Active Substance: METOPROLOL SUCCINATE
     Dosage: DAILY DOSE: 95 MG MILLGRAM(S) EVERY DAYS
  4. AMLODIPINE [Concomitant]
     Active Substance: AMLODIPINE BESYLATE
     Dosage: DAILY DOSE: 5 MG MILLGRAM(S) EVERY DAYS
  5. TAMSULOSIN HYDROCHLORIDE. [Concomitant]
     Active Substance: TAMSULOSIN HYDROCHLORIDE
     Dosage: DAILY DOSE: 0.4 MG MILLGRAM(S) EVERY DAYS
  6. TORSEMIDE. [Concomitant]
     Active Substance: TORSEMIDE
     Dosage: DAILY DOSE:10 MG MILLGRAM(S) EVERY DAYS
  7. ADUMBRAN [Concomitant]
     Active Substance: OXAZEPAM
     Dosage: 20MG Z.N
  8. ASPIRIN. [Concomitant]
     Active Substance: ASPIRIN
     Dosage: DAILY DOSE:1 DF DOSAGE FORM EVERY DAYS
  9. ALBUTEROL. [Concomitant]
     Active Substance: ALBUTEROL
     Dosage: DAILY DOSE: 1 DF DOSAGE FORM EVERY DAYS
     Route: 055
  10. LEVODOPA [Concomitant]
     Active Substance: LEVODOPA
     Dosage: DAILY DOSE: 1 DF DOSAGE FORM EVERY DAYS
  11. PREDNISONE. [Concomitant]
     Active Substance: PREDNISONE
     Dosage: DAILY DOSE: 50 MG MILLGRAM(S) EVERY DAYS
  12. INSULIN [Concomitant]
     Active Substance: INSULIN NOS
  13. VALSARTAN. [Concomitant]
     Active Substance: VALSARTAN
     Dosage: DAILY DOSE:1 DF DOSAGE FORM EVERY DAYS
  14. CLINDAMYCIN. [Concomitant]
     Active Substance: CLINDAMYCIN
     Dosage: DAILY DOSE: 300 MG MILLGRAM(S) EVERY DAYS
  15. ENOXAPARIN SODIUM. [Concomitant]
     Active Substance: ENOXAPARIN SODIUM
     Dosage: DAILY DOSE: 1 DF DOSAGE FORM EVERY DAYS
     Route: 058

REACTIONS (6)
  - VIth nerve paresis [Not Recovered/Not Resolved]
  - Vocal cord paresis [Not Recovered/Not Resolved]
  - Respiratory failure [Not Recovered/Not Resolved]
  - Eyelid ptosis [Not Recovered/Not Resolved]
  - Cranial nerve disorder [Not Recovered/Not Resolved]
  - Neuritis cranial [Not Recovered/Not Resolved]

NARRATIVE: CASE EVENT DATE: 20180524
